FAERS Safety Report 24530102 (Version 1)
Quarter: 2024Q4

REPORT INFORMATION
  Report Type: Spontaneous
  Country: US (occurrence: US)
  Receive Date: 20241021
  Receipt Date: 20241021
  Transmission Date: 20250115
  Serious: No
  Sender: JOHNSON AND JOHNSON
  Company Number: US-JNJFOC-20241014062

PATIENT
  Sex: Female

DRUGS (2)
  1. RISPERDAL [Suspect]
     Active Substance: RISPERIDONE
     Indication: Dementia
     Dosage: 1 MG DAILY
     Route: 065
  2. RISPERDAL [Suspect]
     Active Substance: RISPERIDONE
     Dosage: 1 MG AT NIGHT, 0.5M AT NOON AND 0.5MG AT 4PM.
     Route: 065

REACTIONS (3)
  - Musculoskeletal disorder [Unknown]
  - Joint range of motion decreased [Unknown]
  - Violence-related symptom [Unknown]
